FAERS Safety Report 25807117 (Version 1)
Quarter: 2025Q3

REPORT INFORMATION
  Report Type: Spontaneous
  Country: PR (occurrence: None)
  Receive Date: 20250915
  Receipt Date: 20250915
  Transmission Date: 20251020
  Serious: Yes (Hospitalization)
  Sender: FDA-CTU
  Company Number: None

PATIENT
  Age: 93 Year
  Sex: Female

DRUGS (5)
  1. ERIVEDGE [Suspect]
     Active Substance: VISMODEGIB
     Indication: Basal cell carcinoma
     Dosage: FREQUENCY : DAILY;?
     Route: 048
     Dates: start: 20250824, end: 20250905
  2. AVALIDE 300-12.5 TABLETS [Concomitant]
  3. AMLODIPINE [Concomitant]
     Active Substance: AMLODIPINE BESYLATE
  4. RISPERIDONE [Concomitant]
     Active Substance: RISPERIDONE
  5. SYNTHROID 0.088MG (88MCG)TABLETS [Concomitant]

REACTIONS (7)
  - Decreased appetite [None]
  - Therapy cessation [None]
  - Nausea [None]
  - Vomiting [None]
  - Peripheral swelling [None]
  - Blood sodium decreased [None]
  - Condition aggravated [None]

NARRATIVE: CASE EVENT DATE: 20250901
